FAERS Safety Report 9133642 (Version 1)
Quarter: 2013Q1

REPORT INFORMATION
  Report Type: Spontaneous
  Country: US (occurrence: US)
  Receive Date: 20130128
  Receipt Date: 20130128
  Transmission Date: 20140127
  Serious: No
  Sender: FDA-Public Use
  Company Number: US-PFIZER INC-2013030664

PATIENT
  Age: 78 Year
  Sex: Female
  Weight: 72.11 kg

DRUGS (3)
  1. ARTHROTEC [Suspect]
     Indication: ARTHRALGIA
     Dosage: UNK, 2X/DAY
     Route: 048
  2. TOVIAZ [Suspect]
     Indication: URINARY INCONTINENCE
     Dosage: 4 MG, 1X/DAY
     Route: 048
  3. MICARDIS [Concomitant]
     Dosage: 80 MG, UNK

REACTIONS (2)
  - Nasopharyngitis [Unknown]
  - Paranasal sinus hypersecretion [Unknown]
